FAERS Safety Report 5478103-2 (Version None)
Quarter: 2007Q4

REPORT INFORMATION
  Report Type: 
  Country: None (occurrence: None)
  Receive Date: 20071005
  Receipt Date: 20070926
  Transmission Date: 20080405
  Serious: Yes (Other)
  Sender: FDA-Public Use
  Company Number: IE-JNJFOC-20070902226

PATIENT
  Sex: Female
  Weight: 54 kg

DRUGS (2)
  1. TOPAMAX [Suspect]
     Indication: CONVULSION
     Route: 065
  2. TOPAMAX [Suspect]
     Indication: MIGRAINE
     Route: 065

REACTIONS (3)
  - ANOREXIA NERVOSA [None]
  - DECREASED APPETITE [None]
  - WEIGHT DECREASED [None]
